FAERS Safety Report 14073757 (Version 1)
Quarter: 2017Q4

REPORT INFORMATION
  Report Type: Spontaneous
  Country: US (occurrence: US)
  Receive Date: 20171010
  Receipt Date: 20171010
  Transmission Date: 20180321
  Serious: No
  Sender: FDA-Public Use
  Company Number: US-JNJFOC-20170825543

PATIENT
  Age: 69 Year
  Sex: Male
  Weight: 89.81 kg

DRUGS (4)
  1. HYDROCODONE/ACETAMINOPHEN [Concomitant]
     Active Substance: ACETAMINOPHEN\HYDROCODONE
     Indication: TOOTHACHE
     Route: 065
     Dates: start: 20170824
  2. TYLENOL EXTRA STRENGTH [Suspect]
     Active Substance: ACETAMINOPHEN
     Indication: TOOTHACHE
     Route: 048
     Dates: start: 20170824
  3. HYDROCODONE/ACETAMINOPHEN [Concomitant]
     Active Substance: ACETAMINOPHEN\HYDROCODONE
     Indication: TOOTHACHE
     Route: 065
     Dates: start: 20170823
  4. TYLENOL EXTRA STRENGTH [Suspect]
     Active Substance: ACETAMINOPHEN
     Indication: TOOTHACHE
     Dosage: 4 HOURS APART (2 CAPLETS AT 1:05 AM AND 2 CAPLETS AT 5:05AM)
     Route: 048
     Dates: start: 20170825

REACTIONS (3)
  - Inappropriate schedule of drug administration [Unknown]
  - Product storage error [Unknown]
  - Drug administration error [Unknown]
